FAERS Safety Report 21838179 (Version 1)
Quarter: 2023Q1

REPORT INFORMATION
  Report Type: Spontaneous
  Country: UG (occurrence: UG)
  Receive Date: 20230109
  Receipt Date: 20230109
  Transmission Date: 20230417
  Serious: Yes (Death, Congenital Anomaly)
  Sender: FDA-Public Use
  Company Number: UG-JNJFOC-20230107777

PATIENT
  Sex: Male
  Weight: 2.85 kg

DRUGS (6)
  1. MEBENDAZOLE [Suspect]
     Active Substance: MEBENDAZOLE
     Indication: Product used for unknown indication
     Dosage: ONE DOSE OF MEBENDAZOLE
     Route: 064
  2. CEFIXIME [Concomitant]
     Active Substance: CEFIXIME
     Indication: Urinary tract infection
     Route: 064
  3. FOLIC ACID [Concomitant]
     Active Substance: FOLIC ACID
     Indication: Product used for unknown indication
     Route: 064
  4. PYRIMETHAMINE\SULFADOXINE [Concomitant]
     Active Substance: PYRIMETHAMINE\SULFADOXINE
     Indication: Product used for unknown indication
     Route: 064
  5. TETANUS TOXOIDS [Concomitant]
     Active Substance: TETANUS TOXOIDS
     Indication: Product used for unknown indication
     Dosage: ONE DOSE
     Route: 064
  6. AMPICILLIN [Concomitant]
     Active Substance: AMPICILLIN
     Indication: Prophylaxis
     Route: 042

REACTIONS (2)
  - Congenital central nervous system anomaly [Fatal]
  - Foetal exposure during pregnancy [Recovered/Resolved]
